FAERS Safety Report 14307884 (Version 1)
Quarter: 2017Q4

REPORT INFORMATION
  Report Type: Spontaneous
  Country: GB (occurrence: GB)
  Receive Date: 20171220
  Receipt Date: 20171220
  Transmission Date: 20180321
  Serious: Yes (Disabling)
  Sender: FDA-Public Use
  Company Number: GB-LPDUSPRD-20171739

PATIENT
  Age: 53 Year
  Sex: Female
  Weight: 80 kg

DRUGS (20)
  1. CLENIL MODULITE [Concomitant]
     Active Substance: BECLOMETHASONE DIPROPIONATE
     Dosage: 4 DOSAGE FORMS (1 IN 1 D)
     Route: 065
     Dates: start: 20170512
  2. CHLORPHENAMINE [Concomitant]
     Active Substance: CHLORPHENIRAMINE MALEATE
     Dosage: 3 DOSAGE FORMS 1 IN 1 D)
     Route: 065
     Dates: start: 20170512
  3. FERROUS SULFATE. [Concomitant]
     Active Substance: FERROUS SULFATE
     Dosage: 3 DOSAGE FORMS (1 IN 1 D)
     Route: 065
     Dates: start: 20170512
  4. BETAMETHASONE VALERATE. [Concomitant]
     Active Substance: BETAMETHASONE VALERATE
     Dosage: APPLY( 2 DOSAGE FORMS) 1 IN1 D
     Route: 065
     Dates: start: 20170512
  5. LANSOPRAZOLE. [Concomitant]
     Active Substance: LANSOPRAZOLE
     Dosage: 1 DOSAGE FORM (1 IN 1 D)
     Route: 065
     Dates: start: 20170512
  6. PREDNISOLONE. [Concomitant]
     Active Substance: PREDNISOLONE
     Dosage: 8 DOSAGE FORMS (1 IN 1 D)
     Route: 065
     Dates: start: 20170926
  7. VENOFER [Suspect]
     Active Substance: IRON SUCROSE
     Dosage: UNKNOWN
     Route: 042
     Dates: start: 20171016
  8. AMOXICILLIN. [Concomitant]
     Active Substance: AMOXICILLIN
     Dosage: 3 DOSAGE FORMS (1 IN 1 D)
     Route: 065
     Dates: start: 20170911, end: 20170918
  9. URSODEOXYCHOLIC ACID [Concomitant]
     Active Substance: URSODIOL
     Dosage: 1 QD
     Route: 065
     Dates: start: 20170512
  10. ALENDRONIC ACID [Concomitant]
     Active Substance: ALENDRONIC ACID
     Dosage: 0.1429 DOSAGE FORMS 1 IN 1 WK
     Route: 065
     Dates: start: 20170512
  11. CENTRUM [Concomitant]
     Active Substance: VITAMINS
     Dosage: 1 DOSAGE FORM (1 IN 1 DAY)
     Route: 065
     Dates: start: 20170512
  12. FULTIUM-D3 [Concomitant]
     Active Substance: CHOLECALCIFEROL
     Dosage: 1 DOSAGE FORM (1 IN 1 WK)
     Route: 065
     Dates: start: 20170512
  13. PETROLATUM PARRAFIN [Concomitant]
     Dosage: USE AS DIRECTED
     Route: 065
     Dates: start: 20170512
  14. CALCIUM CARBONATE. [Concomitant]
     Active Substance: CALCIUM CARBONATE
     Dosage: 4 DOSAGE FORMS (1 IN 1 D)
     Route: 065
     Dates: start: 20170512
  15. MAROL [Concomitant]
     Active Substance: TRAMADOL HYDROCHLORIDE
     Dosage: 2 DOSAGE FORMS 1QD
     Route: 065
     Dates: start: 20170701
  16. COCODAMOL [Concomitant]
     Active Substance: ACETAMINOPHEN\CODEINE PHOSPHATE
     Dosage: AS DIRECTED
     Route: 065
     Dates: start: 20170512
  17. QUININE [Concomitant]
     Active Substance: QUININE
     Dosage: AT NIGHT 1 DOSAGE FORM PER DAY
     Route: 065
     Dates: start: 20170512
  18. PARACETAMOL [Concomitant]
     Active Substance: ACETAMINOPHEN
     Dosage: 1 OR 2, 4 TIMES/DAY
     Route: 065
     Dates: start: 20170512
  19. VENTOLIN [Concomitant]
     Active Substance: ALBUTEROL SULFATE
     Dosage: AS DIRECTED
     Route: 065
     Dates: start: 20170512
  20. DERMOL [Concomitant]
     Active Substance: BENZALKONIUM CHLORIDE\CHLORHEXIDINE HYDROCHLORIDE\ISOPROPYL MYRISTATE\PARAFFIN
     Dosage: USE AS DIRECTED
     Route: 065
     Dates: start: 20170512

REACTIONS (1)
  - Dermatitis allergic [Recovered/Resolved with Sequelae]

NARRATIVE: CASE EVENT DATE: 20171016
